FAERS Safety Report 5115424-7 (Version None)
Quarter: 2006Q3

REPORT INFORMATION
  Report Type: 
  Country: None (occurrence: None)
  Receive Date: 20060921
  Receipt Date: 20060915
  Transmission Date: 20061208
  Serious: Yes (Death)
  Sender: FDA-Public Use
  Company Number: HQWYE770515SEP06

PATIENT

DRUGS (1)
  1. INDERAL [Suspect]

REACTIONS (1)
  - WRONG DRUG ADMINISTERED [None]
